FAERS Safety Report 8793335 (Version 1)
Quarter: 2012Q4

REPORT INFORMATION
  Report Type: 
  Country: FR (occurrence: FR)
  Receive Date: 20120917
  Receipt Date: 20120917
  Transmission Date: 20130627
  Serious: Yes (Hospitalization)
  Sender: FDA-Public Use
  Company Number: FR-GILEAD-2012-0061227

PATIENT
  Age: 54 Year
  Sex: Male

DRUGS (14)
  1. AMBRISENTAN [Suspect]
     Indication: PULMONARY HYPERTENSION
     Dosage: 5MG Per day
     Route: 048
     Dates: start: 20120704, end: 20120730
  2. EPITOMAX [Concomitant]
     Indication: PRODUCT USED FOR UNKNOWN INDICATION
     Dosage: 100MG Three times per day
     Route: 048
  3. IMOVANE [Concomitant]
     Indication: PRODUCT USED FOR UNKNOWN INDICATION
     Dosage: 15MG Per day
     Route: 048
  4. TERCIAN                            /00759301/ [Concomitant]
     Indication: PRODUCT USED FOR UNKNOWN INDICATION
     Dosage: 50MG Per day
     Route: 048
  5. ARTANE [Concomitant]
     Indication: PRODUCT USED FOR UNKNOWN INDICATION
     Dosage: 5MG Three times per day
     Route: 048
  6. DEPAKOTE [Concomitant]
     Indication: PRODUCT USED FOR UNKNOWN INDICATION
     Dosage: 500MG Three times per day
     Route: 048
  7. PAROXETINE [Concomitant]
     Indication: PRODUCT USED FOR UNKNOWN INDICATION
     Dosage: 20MG Per day
     Route: 048
  8. IKARAN [Concomitant]
     Indication: PRODUCT USED FOR UNKNOWN INDICATION
     Dosage: 10MG Per day
     Route: 048
  9. PRIMALAN [Concomitant]
     Indication: PRODUCT USED FOR UNKNOWN INDICATION
     Dosage: 1TAB Per day
     Route: 048
  10. LASILIX                            /00032601/ [Concomitant]
     Indication: PRODUCT USED FOR UNKNOWN INDICATION
     Dosage: 40 mg, QD
     Route: 048
     Dates: start: 20120704
  11. PREVISCAN                          /00261401/ [Concomitant]
     Indication: PRODUCT USED FOR UNKNOWN INDICATION
     Route: 048
  12. CLOPIXOL [Concomitant]
     Indication: PRODUCT USED FOR UNKNOWN INDICATION
     Dosage: 25DROP Twice per day
     Route: 048
  13. RISPERDAL [Concomitant]
     Indication: PRODUCT USED FOR UNKNOWN INDICATION
     Dosage: 4MG Three times per day
     Route: 048
  14. TERALITHE [Concomitant]
     Indication: PRODUCT USED FOR UNKNOWN INDICATION
     Dosage: 400MG Twice per day
     Route: 048

REACTIONS (6)
  - Transaminases increased [Recovering/Resolving]
  - Constipation [Recovering/Resolving]
  - Sodium retention [Recovering/Resolving]
  - Vision blurred [Recovering/Resolving]
  - General physical health deterioration [Recovering/Resolving]
  - Abdominal pain [Recovering/Resolving]
